FAERS Safety Report 4485556-5 (Version None)
Quarter: 2004Q4

REPORT INFORMATION
  Report Type: 
  Country: None (occurrence: None)
  Receive Date: 20041021
  Receipt Date: 20041008
  Transmission Date: 20050328
  Serious: Yes (Other)
  Sender: FDA-Public Use
  Company Number: 2004076721

PATIENT
  Age: 42 Year

DRUGS (2)
  1. NARDIL [Suspect]
     Indication: ILL-DEFINED DISORDER
  2. GEODON [Suspect]
     Indication: ILL-DEFINED DISORDER

REACTIONS (1)
  - CEREBROVASCULAR ACCIDENT [None]
